FAERS Safety Report 9455778 (Version 2)
Quarter: 2013Q3

REPORT INFORMATION
  Report Type: Spontaneous
  Country: BR (occurrence: BR)
  Receive Date: 20130813
  Receipt Date: 20130905
  Transmission Date: 20140515
  Serious: Yes (Disabling, Other)
  Sender: FDA-Public Use
  Company Number: BR-SANOFI-AVENTIS-2013SA079194

PATIENT
  Age: 64 Year
  Sex: Female
  Weight: 84 kg

DRUGS (6)
  1. LANTUS [Suspect]
     Indication: TYPE 2 DIABETES MELLITUS
     Route: 065
     Dates: start: 1998
  2. AUTOPEN 24 [Concomitant]
     Indication: DEVICE THERAPY
  3. NOVALGINA [Concomitant]
     Indication: MYALGIA
     Dosage: STRENGTH: 1G?TAKEN WHEN SHE FEEL PAIN
     Route: 048
     Dates: start: 201301
  4. HUMALOG [Concomitant]
     Indication: TYPE 2 DIABETES MELLITUS
     Dosage: DOSE: 18 UI
     Dates: start: 2009
  5. RIVOTRIL [Concomitant]
     Indication: ANXIETY
     Dosage: STRENGTH: 5 MG
     Route: 048
     Dates: start: 2012
  6. METFORMIN [Concomitant]
     Indication: TYPE 2 DIABETES MELLITUS
     Dosage: STRENGTH: 500MG
     Route: 048
     Dates: start: 2009

REACTIONS (5)
  - Diabetic retinopathy [Not Recovered/Not Resolved]
  - Diabetic neuropathy [Not Recovered/Not Resolved]
  - Gait disturbance [Not Recovered/Not Resolved]
  - Mobility decreased [Not Recovered/Not Resolved]
  - Dementia [Not Recovered/Not Resolved]
